FAERS Safety Report 4597188-9 (Version None)
Quarter: 2005Q1

REPORT INFORMATION
  Report Type: 
  Country: None (occurrence: None)
  Receive Date: 20050301
  Receipt Date: 20050221
  Transmission Date: 20050727
  Serious: Yes (Hospitalization)
  Sender: FDA-Public Use
  Company Number: DEWYE443221FEB05

PATIENT
  Age: 61 Year
  Sex: Female

DRUGS (15)
  1. VENLAFAXINE HCL [Suspect]
     Dosage: SEE IMAGE
     Dates: start: 20020830, end: 20020830
  2. VENLAFAXINE HCL [Suspect]
     Dosage: SEE IMAGE
     Dates: start: 20020831, end: 20020920
  3. . [Concomitant]
  4. EDRONAX (REBOXETINE, , 0) [Suspect]
     Dosage: 4 MG PER DAY;
     Dates: start: 20020924, end: 20020926
  5. LITHIUM CARBONATE [Suspect]
     Dosage: SEE IMAGE
     Dates: start: 20020923, end: 20020930
  6. LITHIUM CARBONATE [Suspect]
     Dosage: SEE IMAGE
     Dates: start: 20021001, end: 20021007
  7. LITHIUM CARBONATE [Suspect]
     Dosage: SEE IMAGE
     Dates: start: 20021009, end: 20021214
  8. LITHIUM CARBONATE [Suspect]
     Dosage: SEE IMAGE
     Dates: start: 20021015
  9. . [Concomitant]
  10. . [Concomitant]
  11. . [Concomitant]
  12. . [Concomitant]
  13. MIRTAZAPINE [Suspect]
     Dosage: 30 MG PER DAY;
     Dates: start: 20020923, end: 20020829
  14. MIRTAZAPINE [Suspect]
     Dosage: 30 MG PER DAY;
     Dates: start: 20030823, end: 20020829
  15. ZYPREXA [Suspect]
     Dosage: 2.5 MG PER DAY;
     Dates: start: 20020923, end: 20020905

REACTIONS (3)
  - ABDOMINAL PAIN UPPER [None]
  - BLOOD AMYLASE INCREASED [None]
  - LIPASE INCREASED [None]
